FAERS Safety Report 9285841 (Version 3)
Quarter: 2013Q3

REPORT INFORMATION
  Report Type: Spontaneous
  Country: JP (occurrence: JP)
  Receive Date: 20130513
  Receipt Date: 20130710
  Transmission Date: 20140515
  Serious: Yes (Hospitalization)
  Sender: FDA-Public Use
  Company Number: JP-B.I. PHARMACEUTICALS,INC./RIDGEFIELD-2013-BI-09733NB

PATIENT
  Age: 68 Year
  Sex: Male

DRUGS (3)
  1. TRAZENTA [Suspect]
     Indication: DIABETES MELLITUS
     Dosage: 5 MG
     Route: 048
     Dates: start: 20130122, end: 20130215
  2. DAIKENCHUTO [Suspect]
     Indication: CONSTIPATION
     Dosage: 7.5 G
     Route: 048
     Dates: start: 20130107, end: 20130214
  3. SIGMART [Suspect]
     Indication: ANGINA PECTORIS
     Dosage: 15 MG
     Route: 048
     Dates: start: 20130101, end: 20130220

REACTIONS (1)
  - Drug-induced liver injury [Recovered/Resolved]
